FAERS Safety Report 10166013 (Version 1)
Quarter: 2014Q2

REPORT INFORMATION
  Report Type: Report from Study
  Country: EG (occurrence: EG)
  Receive Date: 20140511
  Receipt Date: 20140511
  Transmission Date: 20141212
  Serious: Yes (Other)
  Sender: FDA-Public Use
  Company Number: PHHY2013EG156475

PATIENT
  Age: 60 Year
  Sex: Female

DRUGS (1)
  1. ICL670A [Suspect]
     Indication: ANAEMIA

REACTIONS (1)
  - Neuropathy peripheral [Unknown]
